FAERS Safety Report 5663124-7 (Version None)
Quarter: 2008Q1

REPORT INFORMATION
  Report Type: 
  Country: None (occurrence: None)
  Receive Date: 20080313
  Receipt Date: 20080310
  Transmission Date: 20080703
  Serious: Yes (Other)
  Sender: FDA-Public Use
  Company Number: B0511476A

PATIENT
  Age: 58 Year
  Sex: Female

DRUGS (5)
  1. LAMICTAL [Suspect]
     Indication: DEPRESSION
     Dosage: 200MG PER DAY
     Route: 048
  2. CIPRALEX [Suspect]
     Indication: DEPRESSION
     Dosage: 15MG PER DAY
     Route: 048
  3. FOLACIN [Concomitant]
  4. BEHEPAN [Concomitant]
  5. LITHIONIT [Concomitant]

REACTIONS (6)
  - FATIGUE [None]
  - LEUKOPENIA [None]
  - PANCYTOPENIA [None]
  - SOMNOLENCE [None]
  - THROMBOCYTOPENIA [None]
  - VITAMIN B12 DEFICIENCY [None]
